FAERS Safety Report 4787515-1 (Version None)
Quarter: 2005Q4

REPORT INFORMATION
  Report Type: 
  Country: None (occurrence: None)
  Receive Date: 20051004
  Receipt Date: 20050921
  Transmission Date: 20060501
  Serious: Yes (Other)
  Sender: FDA-Public Use
  Company Number: US-JNJFOC-20050605103

PATIENT
  Sex: Female

DRUGS (3)
  1. REMICADE [Suspect]
     Route: 042
  2. REMICADE [Suspect]
     Indication: CROHN'S DISEASE
     Route: 042
  3. PAIN MEDS [Concomitant]

REACTIONS (5)
  - ADVERSE EVENT [None]
  - LUPUS-LIKE SYNDROME [None]
  - MALABSORPTION [None]
  - MALAISE [None]
  - PHOTOSENSITIVITY REACTION [None]
